FAERS Safety Report 8875707 (Version 7)
Quarter: 2013Q2

REPORT INFORMATION
  Report Type: Report from Study
  Country: CA (occurrence: CA)
  Receive Date: 20121030
  Receipt Date: 20130527
  Transmission Date: 20140414
  Serious: Yes (Other)
  Sender: FDA-Public Use
  Company Number: PHHO2012CA015599

PATIENT
  Age: 77 Year
  Sex: Female
  Weight: 115 kg

DRUGS (13)
  1. ACZ885 [Suspect]
     Indication: GOUT
     Dosage: 150 MG, QD
     Route: 058
     Dates: start: 20120103
  2. ACZ885 [Suspect]
     Dosage: 150 MG, QD
     Route: 058
     Dates: start: 20120628
  3. MICARDIS PLUS [Concomitant]
     Indication: HYPERTENSION
     Dosage: 500/12.5 UG, BID
     Route: 048
     Dates: start: 20090615
  4. SYNTHROID [Concomitant]
     Indication: HYPOTHYROIDISM
     Dosage: 0.075 MG, UNK
     Route: 048
     Dates: start: 19750629
  5. NOVO-SIMVASTATIN [Concomitant]
     Indication: DYSLIPIDAEMIA
     Dosage: 40 MG, UNK
     Route: 048
     Dates: start: 20040918
  6. NOVO-METOPROL [Concomitant]
     Indication: HYPERTENSION
     Dosage: 100 MG, BID
     Route: 048
     Dates: start: 20010702
  7. COUMADIN [Concomitant]
     Indication: CARDIOVASCULAR EVENT PROPHYLAXIS
     Dosage: 2/3 MG ALTERNANCE
     Route: 048
     Dates: start: 20030711
  8. TRAVATAN [Concomitant]
     Indication: GLAUCOMA
     Dosage: UNK
     Route: 031
     Dates: start: 20090929
  9. TYLENOL [Concomitant]
     Indication: GOUT
     Dosage: 500 MG, PRN
     Route: 048
     Dates: start: 20120512
  10. CRESTOR [Concomitant]
     Indication: DYSLIPIDAEMIA
     Dosage: 40 MG, UNK
     Route: 048
     Dates: start: 20101110
  11. CIPRO [Concomitant]
     Indication: URINARY TRACT INFECTION
     Dosage: 250 MG, UNK
     Route: 048
     Dates: start: 20120314, end: 20120318
  12. METRONIDAZOLE [Concomitant]
     Indication: VESICAL FISTULA
     Dosage: 300 MG, TID
     Route: 048
     Dates: start: 20120615, end: 20120628
  13. CIPROFLOXACIN [Concomitant]
     Indication: VESICAL FISTULA
     Dosage: 500 MG, UNK
     Route: 048
     Dates: start: 20120615, end: 20120628

REACTIONS (1)
  - Breast cancer [Not Recovered/Not Resolved]
